FAERS Safety Report 11109141 (Version 3)
Quarter: 2015Q3

REPORT INFORMATION
  Report Type: Spontaneous
  Country: GR (occurrence: GR)
  Receive Date: 20150513
  Receipt Date: 20150710
  Transmission Date: 20151125
  Serious: No
  Sender: FDA-Public Use
  Company Number: GR-AMGEN-GRCSP2015044976

PATIENT
  Age: 62 Year
  Sex: Female

DRUGS (4)
  1. PROLIA [Suspect]
     Active Substance: DENOSUMAB
     Indication: OSTEOPOROSIS POSTMENOPAUSAL
     Dosage: UNK
     Route: 058
     Dates: start: 201412, end: 201412
  2. EPOETIN THETA [Concomitant]
     Active Substance: ERYTHROPOIETIN
     Dosage: UNK
     Route: 030
  3. MABTHERA [Concomitant]
     Active Substance: RITUXIMAB
     Dosage: 100 UNK, UNK
     Route: 042
  4. MEDROL [Concomitant]
     Active Substance: METHYLPREDNISOLONE
     Dosage: 16 MG, UNK
     Route: 048

REACTIONS (5)
  - Chills [Recovered/Resolved]
  - Arthralgia [Recovered/Resolved]
  - Asthenia [Unknown]
  - Myalgia [Recovered/Resolved]
  - Fatigue [Recovered/Resolved]

NARRATIVE: CASE EVENT DATE: 201412
